FAERS Safety Report 25040493 (Version 4)
Quarter: 2025Q4

REPORT INFORMATION
  Report Type: Report from Study
  Country: CA (occurrence: CA)
  Receive Date: 20250305
  Receipt Date: 20251203
  Transmission Date: 20260117
  Serious: Yes (Other)
  Sender: AMGEN
  Company Number: CA-AMGEN-CANSL2023138444

PATIENT
  Age: 68 Year
  Sex: Male
  Weight: 74.2 kg

DRUGS (4)
  1. AVSOLA [Suspect]
     Active Substance: INFLIXIMAB-AXXQ
     Indication: Ankylosing spondylitis
     Dosage: 300 MILLIGRAM, Q8WK
     Route: 042
     Dates: start: 20210218
  2. AVSOLA [Suspect]
     Active Substance: INFLIXIMAB-AXXQ
     Dosage: 300 MILLIGRAM, Q8WK
     Route: 042
  3. AVSOLA [Suspect]
     Active Substance: INFLIXIMAB-AXXQ
     Dosage: 300 MILLIGRAM, Q8WK
     Route: 042
  4. AVSOLA [Suspect]
     Active Substance: INFLIXIMAB-AXXQ
     Dosage: 300 MILLIGRAM, Q8WK
     Route: 042
     Dates: start: 20251128

REACTIONS (4)
  - Rectal cancer [Unknown]
  - Unevaluable event [Unknown]
  - Off label use [Unknown]
  - Eye infection [Unknown]

NARRATIVE: CASE EVENT DATE: 20210218
